FAERS Safety Report 9529563 (Version 1)
Quarter: 2013Q3

REPORT INFORMATION
  Report Type: Report from Study
  Country: US (occurrence: US)
  Receive Date: 20130917
  Receipt Date: 20130917
  Transmission Date: 20140515
  Serious: Yes (Death)
  Sender: FDA-Public Use
  Company Number: PHEH2012US026050

PATIENT
  Age: 44 Year
  Sex: Male

DRUGS (1)
  1. TOBI [Suspect]
     Dosage: 300 MG/ 5ML , BID
     Dates: start: 20110406

REACTIONS (1)
  - Death [Fatal]
